FAERS Safety Report 8448149-0 (Version None)
Quarter: 2012Q2

REPORT INFORMATION
  Report Type: 
  Country: None (occurrence: None)
  Receive Date: 20120531
  Receipt Date: 20120518
  Transmission Date: 20120825
  Serious: Yes (Other)
  Sender: FDA-Public Use
  Company Number: 2012032284

PATIENT
  Sex: Female
  Weight: 58.9676 kg

DRUGS (2)
  1. HIZENTRA [Suspect]
     Dosage: 7 G 1/WEEK, EVERY SATURDAY, SUBCUTANEOUS
     Route: 058
  2. ASPIRIN [Concomitant]

REACTIONS (1)
  - TRANSIENT ISCHAEMIC ATTACK [None]
